FAERS Safety Report 17466290 (Version 1)
Quarter: 2020Q1

REPORT INFORMATION
  Report Type: Spontaneous
  Country: US (occurrence: US)
  Receive Date: 20200227
  Receipt Date: 20200227
  Transmission Date: 20200409
  Serious: No
  Sender: FDA-Public Use
  Company Number: US-AUROBINDO-AUR-APL-2019-015355

PATIENT
  Age: 80 Year
  Sex: Female
  Weight: 68 kg

DRUGS (3)
  1. VITAMIN D [Concomitant]
     Active Substance: VITAMIN D NOS
     Indication: PRODUCT USED FOR UNKNOWN INDICATION
     Dosage: UNK
     Route: 065
  2. VALSARTAN TABLETS USP 80MG [Suspect]
     Active Substance: VALSARTAN
     Indication: HYPERTENSION
     Dosage: 1 DOSAGE FORM, DAILY
     Route: 065
     Dates: start: 20181207, end: 20190306
  3. VALSARTAN TABLETS USP 80MG [Suspect]
     Active Substance: VALSARTAN
     Dosage: 1 DOSAGE FORM, DAILY
     Route: 065
     Dates: start: 20190306

REACTIONS (2)
  - Fatigue [Not Recovered/Not Resolved]
  - Musculoskeletal stiffness [Not Recovered/Not Resolved]

NARRATIVE: CASE EVENT DATE: 20190311
